FAERS Safety Report 11655201 (Version 1)
Quarter: 2015Q4

REPORT INFORMATION
  Report Type: Spontaneous
  Country: BR (occurrence: BR)
  Receive Date: 20151023
  Receipt Date: 20151023
  Transmission Date: 20160304
  Serious: Yes (Other)
  Sender: FDA-Public Use
  Company Number: BR-PFIZER INC-2015351761

PATIENT
  Age: 83 Year
  Sex: Female
  Weight: 90 kg

DRUGS (1)
  1. NORVASC [Suspect]
     Active Substance: AMLODIPINE BESYLATE
     Indication: HYPERTENSION
     Dosage: 5 MG, 1X/DAY IN THE MORNING
     Route: 048

REACTIONS (4)
  - Cerebrovascular accident [Unknown]
  - Inappropriate schedule of drug administration [Unknown]
  - Diabetes mellitus [Not Recovered/Not Resolved]
  - Venous occlusion [Unknown]

NARRATIVE: CASE EVENT DATE: 2013
